FAERS Safety Report 7291152-7 (Version None)
Quarter: 2011Q1

REPORT INFORMATION
  Report Type: 
  Country: None (occurrence: None)
  Receive Date: 20110214
  Receipt Date: 20110202
  Transmission Date: 20110831
  Serious: Yes (Hospitalization)
  Sender: FDA-Public Use
  Company Number: ES-ELI_LILLY_AND_COMPANY-ES201003006493

PATIENT
  Sex: Female
  Weight: 70 kg

DRUGS (7)
  1. PARACETAMOL [Concomitant]
     Indication: PAIN
     Dosage: 1 G, AS NEEDED
     Route: 048
  2. ADIRO [Concomitant]
     Dosage: 300 MG, DAILY (1/D)
     Route: 048
     Dates: start: 20100228
  3. CARDIL                             /00489702/ [Concomitant]
     Indication: CORONARY ARTERY INSUFFICIENCY
     Dosage: 20 MG, DAILY (1/D)
     Route: 048
     Dates: start: 20100228
  4. FORTEO [Suspect]
     Indication: FRACTURE
     Dosage: 20 UG, DAILY (1/D)
     Route: 058
     Dates: start: 20100120, end: 20100101
  5. FORTEO [Suspect]
     Dosage: 20 UG, DAILY (1/D)
     Route: 058
     Dates: start: 20100101
  6. NOLOTIL [Concomitant]
     Indication: PAIN
     Dosage: 575 MG, AS NEEDED
     Route: 048
  7. ULCERAL [Concomitant]
     Dosage: 20 MG, DAILY (1/D)
     Route: 048
     Dates: start: 20030101

REACTIONS (3)
  - TRANSIENT ISCHAEMIC ATTACK [None]
  - THROMBOSIS [None]
  - PRURITUS [None]
